FAERS Safety Report 5414419-3 (Version None)
Quarter: 2007Q3

REPORT INFORMATION
  Report Type: 
  Country: None (occurrence: None)
  Receive Date: 20070814
  Receipt Date: 20070807
  Transmission Date: 20080115
  Serious: Yes (Hospitalization)
  Sender: FDA-Public Use
  Company Number: SE-ABBOTT-05P-150-0299837-00

PATIENT
  Sex: Male

DRUGS (4)
  1. HUMIRA [Suspect]
     Indication: RHEUMATOID ARTHRITIS
     Route: 058
     Dates: start: 20050124, end: 20050312
  2. METOJECT SOLUTION FOR INJECTION [Concomitant]
     Indication: RHEUMATOID ARTHRITIS
     Dosage: 10MG/ML
     Route: 058
     Dates: start: 20040601
  3. FOLACIN [Concomitant]
     Indication: DRUG USE FOR UNKNOWN INDICATION
  4. PREDNISOLONE [Concomitant]
     Indication: DRUG USE FOR UNKNOWN INDICATION

REACTIONS (5)
  - CEREBRAL INFARCTION [None]
  - COMPUTERISED TOMOGRAM ABNORMAL [None]
  - DIPLOPIA [None]
  - GAZE PALSY [None]
  - HEMIPARESIS [None]
